FAERS Safety Report 7875232 (Version 2)
Quarter: 2013Q1

REPORT INFORMATION
  Report Type: Spontaneous
  Country: US (occurrence: None)
  Receive Date: 20110307
  Receipt Date: 20130222
  Transmission Date: 20140127
  Serious: Yes (Hospitalization, Other)
  Sender: FDA-Public Use
  Company Number: ACO_21921_2011

PATIENT
  Age: 48 Year
  Sex: Female

DRUGS (4)
  1. AMPYRA [Suspect]
     Indication: PRODUCT USED FOR UNKNOWN INDICATION
     Route: 048
     Dates: start: 20101101, end: 201102
  2. BETASERON [Suspect]
     Dates: end: 201101
  3. LEXAPRO [Concomitant]
  4. PROTONIX [Concomitant]

REACTIONS (10)
  - Convulsion [None]
  - Multiple sclerosis relapse [None]
  - Urinary tract infection [None]
  - Asthenia [None]
  - Heart rate decreased [None]
  - Blood pressure decreased [None]
  - Lethargy [None]
  - Eye pain [None]
  - Laboratory test interference [None]
  - Therapeutic response unexpected [None]
